FAERS Safety Report 10974963 (Version 1)
Quarter: 2015Q1

REPORT INFORMATION
  Report Type: Spontaneous
  Country: US (occurrence: None)
  Receive Date: 20150226
  Receipt Date: 20150226
  Transmission Date: 20150721
  Serious: No
  Sender: FDA-Public Use
  Company Number: TPA2010A03159

PATIENT
  Age: 58 Year
  Sex: Male
  Weight: 104.33 kg

DRUGS (7)
  1. MAXZIDE HYDROCHLOROTHIAZIDE, TRIAMTERENE) [Concomitant]
  2. ANDROGEL [Concomitant]
     Active Substance: TESTOSTERONE
  3. COZAAR [Concomitant]
     Active Substance: LOSARTAN POTASSIUM
  4. KCI (POTASSIUM CHLORIDE) [Concomitant]
  5. ULORIC [Suspect]
     Active Substance: FEBUXOSTAT
     Indication: GOUT
     Route: 048
     Dates: start: 20100324
  6. LASIX [Concomitant]
     Active Substance: FUROSEMIDE
  7. LOVASTATIN (LOVASTATIN) [Concomitant]
     Active Substance: LOVASTATIN

REACTIONS (2)
  - Condition aggravated [None]
  - Gout [None]
